FAERS Safety Report 6996628-5 (Version None)
Quarter: 2010Q3

REPORT INFORMATION
  Report Type: 
  Country: None (occurrence: None)
  Receive Date: 20100918
  Receipt Date: 20090422
  Transmission Date: 20110219
  Serious: No
  Sender: FDA-Public Use
  Company Number: US-WYE-H09100309

PATIENT
  Sex: Female
  Weight: 86.26 kg

DRUGS (6)
  1. EFFEXOR XR [Suspect]
     Indication: ANXIETY
     Route: 048
     Dates: start: 20000101
  2. EFFEXOR XR [Suspect]
     Indication: PANIC DISORDER
     Route: 048
     Dates: end: 20090401
  3. EFFEXOR XR [Suspect]
     Route: 048
     Dates: start: 20090401, end: 20090419
  4. EFFEXOR XR [Suspect]
     Dosage: 150 MG EVERY 1 TOT
     Route: 048
     Dates: start: 20090422
  5. LISINOPRIL [Concomitant]
  6. BENICAR HCT [Concomitant]

REACTIONS (7)
  - CHEST DISCOMFORT [None]
  - COLD SWEAT [None]
  - DIARRHOEA [None]
  - DRUG WITHDRAWAL SYNDROME [None]
  - HYPERTENSION [None]
  - NAUSEA [None]
  - RESPIRATORY RATE INCREASED [None]
